FAERS Safety Report 25061293 (Version 1)
Quarter: 2025Q1

REPORT INFORMATION
  Report Type: Report from Study
  Country: US (occurrence: US)
  Receive Date: 20250311
  Receipt Date: 20250311
  Transmission Date: 20250409
  Serious: Yes (Other)
  Sender: ABBVIE
  Company Number: US-ABBVIE-6163790

PATIENT
  Age: 38 Year
  Sex: Male

DRUGS (1)
  1. CREON [Suspect]
     Active Substance: PANCRELIPASE AMYLASE\PANCRELIPASE LIPASE\PANCRELIPASE PROTEASE
     Indication: Product used for unknown indication
     Route: 048
     Dates: start: 20240101, end: 20240115

REACTIONS (7)
  - Gastrointestinal surgery [Unknown]
  - Diarrhoea [Not Recovered/Not Resolved]
  - Back pain [Unknown]
  - Abdominal distension [Not Recovered/Not Resolved]
  - Pain [Not Recovered/Not Resolved]
  - Steatorrhoea [Unknown]
  - Increased appetite [Unknown]

NARRATIVE: CASE EVENT DATE: 20240101
